FAERS Safety Report 7927299-9 (Version None)
Quarter: 2011Q4

REPORT INFORMATION
  Report Type: 
  Country: None (occurrence: None)
  Receive Date: 20111118
  Receipt Date: 20111109
  Transmission Date: 20120403
  Serious: Yes (Other)
  Sender: FDA-Public Use
  Company Number: PHEH2011US008977

PATIENT

DRUGS (1)
  1. AREDIA [Suspect]
     Dosage: UNK UKN, UNK

REACTIONS (3)
  - LIVER DISORDER [None]
  - NEUROPATHY PERIPHERAL [None]
  - RENAL DISORDER [None]
